FAERS Safety Report 7735736-8 (Version None)
Quarter: 2011Q3

REPORT INFORMATION
  Report Type: 
  Country: None (occurrence: None)
  Receive Date: 20110908
  Receipt Date: 20110829
  Transmission Date: 20111222
  Serious: Yes (Hospitalization)
  Sender: FDA-Public Use
  Company Number: US-BIOGENIDEC-2011BI033649

PATIENT
  Age: 39 Year
  Sex: Female

DRUGS (2)
  1. TYSABRI [Suspect]
     Indication: MULTIPLE SCLEROSIS
     Route: 042
     Dates: start: 20080602, end: 20080728
  2. TYSABRI [Suspect]
     Route: 042
     Dates: start: 20090903

REACTIONS (3)
  - BALANCE DISORDER [None]
  - VISUAL IMPAIRMENT [None]
  - ASTHENIA [None]
